FAERS Safety Report 7888093-0 (Version None)
Quarter: 2011Q4

REPORT INFORMATION
  Report Type: 
  Country: None (occurrence: None)
  Receive Date: 20111103
  Receipt Date: 20111028
  Transmission Date: 20120403
  Serious: Yes (Other)
  Sender: FDA-Public Use
  Company Number: DE-BRISTOL-MYERS SQUIBB COMPANY-15865272

PATIENT
  Age: 22 Year
  Sex: Male
  Weight: 80 kg

DRUGS (6)
  1. NASONEX [Suspect]
  2. ABILIFY [Suspect]
     Dosage: 1 D.F:5MG-15MG
     Route: 048
     Dates: start: 20080101, end: 20110101
  3. TIAPRIDE [Suspect]
     Route: 048
     Dates: start: 19990101, end: 20110101
  4. CAPTOPRIL [Suspect]
     Dosage: CAPTOPRIL  AI 0.5-0-0
     Route: 048
     Dates: start: 20030101
  5. OMEPRAZOLE [Suspect]
     Route: 048
     Dates: start: 20080101
  6. FLUVOXAMINE MALEATE [Suspect]
     Dosage: 1.5-0-0 FLUVOXAMINE AL
     Route: 048
     Dates: start: 20000101, end: 20110101

REACTIONS (1)
  - KERATOCONUS [None]
